FAERS Safety Report 6469034-X (Version None)
Quarter: 2009Q4

REPORT INFORMATION
  Report Type: 
  Country: None (occurrence: None)
  Receive Date: 20091203
  Receipt Date: 20091124
  Transmission Date: 20100525
  Serious: Yes (Disabling)
  Sender: FDA-Public Use
  Company Number: PHHO2008NL05853

PATIENT
  Sex: Male
  Weight: 66.2 kg

DRUGS (1)
  1. AFINITOR [Suspect]
     Indication: RENAL CANCER METASTATIC
     Dosage: 10MG/DAY
     Route: 048
     Dates: start: 20070801, end: 20080428

REACTIONS (6)
  - ANAEMIA [None]
  - CARDIAC FAILURE [None]
  - DYSPNOEA [None]
  - PERICARDIAL EFFUSION [None]
  - PNEUMONIA [None]
  - VENTRICULAR DYSFUNCTION [None]
